FAERS Safety Report 19452145 (Version 2)
Quarter: 2021Q3

REPORT INFORMATION
  Report Type: Report from Study
  Country: None (occurrence: US)
  Receive Date: 20210623
  Receipt Date: 20210710
  Transmission Date: 20211014
  Serious: Yes (Hospitalization)
  Sender: FDA-Public Use
  Company Number: US-ABBVIE-21K-163-3959064-00

PATIENT
  Age: 57 Year
  Sex: Female
  Weight: 63.56 kg

DRUGS (2)
  1. HUMIRA [Suspect]
     Active Substance: ADALIMUMAB
     Indication: CROHN^S DISEASE
     Dosage: CITRATE FREE
     Route: 058
     Dates: start: 20210608, end: 20210608
  2. HUMIRA [Suspect]
     Active Substance: ADALIMUMAB
     Indication: CROHN^S DISEASE
     Route: 058
     Dates: start: 202106

REACTIONS (15)
  - Hypoaesthesia [Unknown]
  - Impaired gastric emptying [Unknown]
  - Rectal haemorrhage [Recovered/Resolved]
  - Anaemia [Recovering/Resolving]
  - Gastrointestinal inflammation [Unknown]
  - Muscle spasms [Unknown]
  - Haematocrit decreased [Unknown]
  - Paraesthesia [Unknown]
  - Blood iron decreased [Recovering/Resolving]
  - Haemoglobin decreased [Unknown]
  - Thrombosis [Unknown]
  - Vision blurred [Recovering/Resolving]
  - Device issue [Unknown]
  - Abdominal pain upper [Recovered/Resolved]
  - Visual impairment [Recovered/Resolved]

NARRATIVE: CASE EVENT DATE: 202106
